FAERS Safety Report 25955750 (Version 3)
Quarter: 2025Q4

REPORT INFORMATION
  Report Type: Spontaneous
  Country: US (occurrence: US)
  Receive Date: 20251024
  Receipt Date: 20251208
  Transmission Date: 20260117
  Serious: No
  Sender: BLUEPRINT MEDICINES
  Company Number: US-Blueprint Medicines Corporation-2025-AER-02299

PATIENT
  Age: 71 Year
  Sex: Female

DRUGS (1)
  1. AYVAKIT [Suspect]
     Active Substance: AVAPRITINIB
     Indication: Systemic mastocytosis
     Route: 065
     Dates: start: 20251014

REACTIONS (5)
  - Headache [Recovered/Resolved]
  - Sinus disorder [Unknown]
  - Hypersensitivity [Unknown]
  - Sinusitis [Unknown]
  - Brain fog [Unknown]

NARRATIVE: CASE EVENT DATE: 20251016
